FAERS Safety Report 5808065-7 (Version None)
Quarter: 2008Q3

REPORT INFORMATION
  Report Type: 
  Country: None (occurrence: None)
  Receive Date: 20080711
  Receipt Date: 20080701
  Transmission Date: 20090109
  Serious: Yes (Other)
  Sender: FDA-Public Use
  Company Number: CN-PFIZER INC-2008055062

PATIENT
  Age: 31 Year
  Sex: Female

DRUGS (1)
  1. SUTENT [Suspect]
     Indication: LUNG NEOPLASM MALIGNANT
     Route: 048

REACTIONS (5)
  - ANOREXIA [None]
  - BONE PAIN [None]
  - CONSTIPATION [None]
  - GENERALISED OEDEMA [None]
  - MICTURITION DISORDER [None]
